FAERS Safety Report 9759936 (Version 1)
Quarter: 2013Q4

REPORT INFORMATION
  Report Type: Spontaneous
  Country: DK (occurrence: NO)
  Receive Date: 20131216
  Receipt Date: 20131216
  Transmission Date: 20140711
  Serious: Yes (Death)
  Sender: FDA-Public Use
  Company Number: NO-FRI-1000052215

PATIENT
  Age: 20 Year
  Sex: Female

DRUGS (19)
  1. ESCITALOPRAM [Suspect]
     Indication: DEPRESSION
  2. CITALOPRAM [Suspect]
     Indication: PRODUCT USED FOR UNKNOWN INDICATION
  3. TRUXAL [Suspect]
     Indication: PRODUCT USED FOR UNKNOWN INDICATION
  4. SAROTEX [Suspect]
     Indication: DEPRESSION
  5. RIVOTRIL [Suspect]
     Indication: DEPRESSION
  6. SOBRIL [Suspect]
     Indication: PRODUCT USED FOR UNKNOWN INDICATION
  7. REMERON [Suspect]
     Indication: DEPRESSION
  8. CATAPRESAN [Suspect]
     Indication: DEPRESSION
  9. ATARAX [Suspect]
     Indication: DEPRESSION
  10. NOBLIGAN [Suspect]
     Indication: DEPRESSION
  11. SEROQUEL [Suspect]
     Indication: DEPRESSION
  12. VIVAL [Suspect]
     Indication: DEPRESSION
  13. LAMICTAL [Suspect]
     Indication: DEPRESSION
  14. TRAMADOL [Suspect]
     Indication: DEPRESSION
  15. IMOVANE [Suspect]
     Indication: DEPRESSION
     Route: 048
  16. ORFIRIL [Suspect]
     Indication: DEPRESSION
  17. OXYNORM [Suspect]
     Indication: DEPRESSION
  18. NOZINAN [Suspect]
     Indication: DEPRESSION
  19. PINEX FORTE [Suspect]
     Indication: DEPRESSION

REACTIONS (1)
  - Completed suicide [Fatal]
